FAERS Safety Report 7880572-5 (Version None)
Quarter: 2011Q4

REPORT INFORMATION
  Report Type: 
  Country: None (occurrence: None)
  Receive Date: 20111101
  Receipt Date: 20100930
  Transmission Date: 20120403
  Serious: No
  Sender: FDA-Public Use
  Company Number: US-BAYER-201036140NA

PATIENT
  Age: 66 Year
  Sex: Female
  Weight: 72.727 kg

DRUGS (4)
  1. SYNTHROID [Concomitant]
  2. ULTRAVIST 300 [Suspect]
     Indication: CHEST X-RAY ABNORMAL
  3. ULTRAVIST 300 [Suspect]
     Indication: COUGH
  4. ULTRAVIST 300 [Suspect]
     Indication: COMPUTERISED TOMOGRAM THORAX
     Dosage: LEFT ANTECUBITAL USING POWER INJECTOR @ A RATE OF 2.0 ML/SECOND
     Route: 042
     Dates: start: 20100930, end: 20100930

REACTIONS (1)
  - VOMITING [None]
